FAERS Safety Report 8518610-9 (Version None)
Quarter: 2012Q3

REPORT INFORMATION
  Report Type: 
  Country: None (occurrence: None)
  Receive Date: 20120718
  Receipt Date: 20110609
  Transmission Date: 20120928
  Serious: No
  Sender: FDA-Public Use
  Company Number: US-BRISTOL-MYERS SQUIBB COMPANY-15741424

PATIENT
  Age: 55 Year
  Sex: Female
  Weight: 52 kg

DRUGS (2)
  1. WARFARIN SODIUM [Suspect]
     Indication: DEEP VEIN THROMBOSIS
     Dosage: 5 MG ON TUESDAY AND THURSDAY. 2.5 MG ON OTHER DAYS OF THE WEAK.
     Route: 048
     Dates: start: 20101210
  2. WARFARIN SODIUM [Suspect]
     Indication: THROMBOSIS
     Dosage: 5 MG ON TUESDAY AND THURSDAY. 2.5 MG ON OTHER DAYS OF THE WEAK.
     Route: 048
     Dates: start: 20101210

REACTIONS (4)
  - FATIGUE [None]
  - HOT FLUSH [None]
  - ALOPECIA [None]
  - PALLOR [None]
